FAERS Safety Report 16628244 (Version 2)
Quarter: 2019Q3

REPORT INFORMATION
  Report Type: Spontaneous
  Country: DE (occurrence: DE)
  Receive Date: 20190724
  Receipt Date: 20190726
  Transmission Date: 20191004
  Serious: Yes (Hospitalization)
  Sender: FDA-Public Use
  Company Number: DE-ANIPHARMA-2019-DE-000102

PATIENT
  Age: 83 Year
  Sex: Female

DRUGS (7)
  1. HYDROCHLOROTHIAZIDE. [Suspect]
     Active Substance: HYDROCHLOROTHIAZIDE
     Indication: PRODUCT USED FOR UNKNOWN INDICATION
     Dosage: 12.5 MG, UNK (1-0-0-0)
     Route: 048
  2. LEVOTHYROXINE SODIUM. [Concomitant]
     Active Substance: LEVOTHYROXINE SODIUM
     Dosage: 50 UG/INHAL, UNK (1-0-0-0)
     Route: 048
  3. COLECALCIFEROL [Concomitant]
     Active Substance: CHOLECALCIFEROL
     Dosage: UNK (20000 IU, ONCE PER WEEK, TABLETS)
     Route: 048
  4. CANDESARTAN. [Suspect]
     Active Substance: CANDESARTAN
     Indication: PRODUCT USED FOR UNKNOWN INDICATION
     Dosage: 32 MG, UNK (1-0-0-0)
     Route: 048
  5. ADIPHENINE+BENZETIL+DIPHENHYDRAMINE+METAMIZOL [Concomitant]
     Dosage: 500 MG, UNK (1-0-0-0)
     Route: 048
  6. METHAZOLAMIDE. [Concomitant]
     Active Substance: METHAZOLAMIDE
     Dosage: 500 MG, UNK (1-0-0-0)
     Route: 048
  7. LERCANIDIPINE [Concomitant]
     Active Substance: LERCANIDIPINE
     Dosage: 12.5 MG, UNK (0-0-1-0)
     Route: 048

REACTIONS (4)
  - General physical health deterioration [Unknown]
  - Fall [Unknown]
  - Dyspnoea [Unknown]
  - Product monitoring error [Unknown]
